FAERS Safety Report 22633563 (Version 1)
Quarter: 2023Q2

REPORT INFORMATION
  Report Type: Spontaneous
  Country: US (occurrence: US)
  Receive Date: 20230623
  Receipt Date: 20230623
  Transmission Date: 20230722
  Serious: No
  Sender: FDA-Public Use
  Company Number: US-BRISTOL-MYERS SQUIBB COMPANY-2023-088579

PATIENT
  Age: 84 Year
  Sex: Female

DRUGS (1)
  1. REVLIMID [Suspect]
     Active Substance: LENALIDOMIDE
     Indication: Plasma cell myeloma
     Dosage: FREQ: ONCE DAILY FOR 14 DAYS ON AND 7DAYS OFF
     Route: 048
     Dates: start: 202109

REACTIONS (3)
  - Gastrointestinal disorder [Unknown]
  - Candida infection [Unknown]
  - Off label use [Unknown]
